FAERS Safety Report 20848883 (Version 1)
Quarter: 2022Q2

REPORT INFORMATION
  Report Type: Spontaneous
  Country: US (occurrence: None)
  Receive Date: 20220518
  Receipt Date: 20220518
  Transmission Date: 20220721
  Serious: Yes (Death)
  Sender: FDA-Public Use
  Company Number: None

PATIENT
  Age: 48 Year
  Sex: Female
  Weight: 40.37 kg

DRUGS (3)
  1. ONUREG [Suspect]
     Active Substance: AZACITIDINE
     Indication: Myelodysplastic syndrome
     Dosage: ONE TABLET (300MG) DAILY PO 14 DAYS ON, 14 DAYS OFF?
     Route: 048
     Dates: start: 202105, end: 202205
  2. IRON\VITAMINS [Concomitant]
     Active Substance: IRON\VITAMINS
  3. ONDANSETRON [Concomitant]
     Active Substance: ONDANSETRON

REACTIONS (2)
  - General physical health deterioration [None]
  - Neoplasm malignant [None]

NARRATIVE: CASE EVENT DATE: 20220502
